FAERS Safety Report 23375677 (Version 1)
Quarter: 2024Q1

REPORT INFORMATION
  Report Type: Spontaneous
  Country: US (occurrence: US)
  Receive Date: 20240107
  Receipt Date: 20240107
  Transmission Date: 20240410
  Serious: Yes (Other)
  Sender: FDA-Public Use
  Company Number: US-BAUSCHBL-2023BNL013898

PATIENT
  Age: 39 Year
  Sex: Male

DRUGS (3)
  1. SODIUM CHLORIDE [Suspect]
     Active Substance: SODIUM CHLORIDE
     Indication: Hyponatraemia
     Route: 065
  2. FUROSEMIDE [Suspect]
     Active Substance: FUROSEMIDE
     Indication: Hyponatraemia
     Route: 065
  3. TOLVAPTAN [Suspect]
     Active Substance: TOLVAPTAN
     Indication: Hyponatraemia
     Route: 065

REACTIONS (1)
  - Therapy non-responder [Unknown]
